FAERS Safety Report 4932862-3 (Version None)
Quarter: 2006Q1

REPORT INFORMATION
  Report Type: 
  Country: None (occurrence: None)
  Receive Date: 20060302
  Receipt Date: 20060302
  Transmission Date: 20060701
  Serious: Yes (Other)
  Sender: FDA-Public Use
  Company Number: None

PATIENT

DRUGS (7)
  1. FENTANYL [Suspect]
     Indication: PAIN IN EXTREMITY
     Dosage: 1 QD 2D
     Dates: start: 20050101, end: 20050201
  2. LORTAB [Concomitant]
  3. RELAFEN [Concomitant]
  4. SKELAXIN [Concomitant]
  5. EFFEXOR [Concomitant]
  6. LOSERALL [Concomitant]
  7. NEURONTIN [Concomitant]

REACTIONS (2)
  - DRUG EFFECT DECREASED [None]
  - THERAPEUTIC RESPONSE UNEXPECTED WITH DRUG SUBSTITUTION [None]
